FAERS Safety Report 11031901 (Version 1)
Quarter: 2015Q2

REPORT INFORMATION
  Report Type: Spontaneous
  Country: CZ (occurrence: CZ)
  Receive Date: 20150415
  Receipt Date: 20150415
  Transmission Date: 20150821
  Serious: Yes (Life-Threatening, Hospitalization, Other)
  Sender: FDA-Public Use
  Company Number: CZ-GLAXOSMITHKLINE-CZ2015046623

PATIENT
  Age: 67 Year
  Sex: Female
  Weight: 74 kg

DRUGS (3)
  1. ZINNAT [Suspect]
     Active Substance: CEFUROXIME AXETIL
     Indication: URINARY TRACT INFECTION
     Route: 048
     Dates: start: 20150311, end: 20150311
  2. RIVOTRIL [Concomitant]
     Active Substance: CLONAZEPAM
     Route: 048
  3. CINARIZIN [Concomitant]
     Route: 048

REACTIONS (6)
  - Presyncope [Recovered/Resolved]
  - Hypotension [Unknown]
  - Tongue oedema [Recovered/Resolved]
  - Rash [Recovered/Resolved]
  - Lip swelling [Recovered/Resolved]
  - Anaphylactic reaction [Recovered/Resolved]

NARRATIVE: CASE EVENT DATE: 20150311
